FAERS Safety Report 7592068-9 (Version None)
Quarter: 2011Q2

REPORT INFORMATION
  Report Type: 
  Country: None (occurrence: None)
  Receive Date: 20110628
  Receipt Date: 20110616
  Transmission Date: 20111010
  Serious: Yes (Other)
  Sender: FDA-Public Use
  Company Number: 2011SP008759

PATIENT
  Age: 66 Year
  Sex: Male

DRUGS (12)
  1. DEXAMETHASONE [Concomitant]
  2. PHENYTOIN [Suspect]
     Indication: PRODUCT USED FOR UNKNOWN INDICATION
     Dosage: 350, 200 MG, BID
  3. LACTULOSE [Concomitant]
  4. MOVICOLON [Concomitant]
  5. TEMODAL [Suspect]
     Indication: GLIOBLASTOMA
     Dosage: 150,360 MG, OD, QM, PO
     Route: 048
  6. TEMODAL [Suspect]
     Indication: GLIOBLASTOMA
     Dosage: 150,360 MG, OD, QM, PO
     Route: 048
     Dates: start: 20101216
  7. TEMODAL [Suspect]
     Indication: GLIOBLASTOMA
     Dosage: 150,360 MG, OD, QM, PO
     Route: 048
  8. LAMICTAL [Concomitant]
  9. ONDANSETRON [Concomitant]
  10. KEPPRA [Concomitant]
  11. OMEPRAZOLE [Concomitant]
  12. SEPTRA [Concomitant]

REACTIONS (3)
  - GAMMA-GLUTAMYLTRANSFERASE INCREASED [None]
  - TONIC CONVULSION [None]
  - DRUG INTERACTION [None]
